FAERS Safety Report 5892216-2 (Version None)
Quarter: 2008Q3

REPORT INFORMATION
  Report Type: 
  Country: None (occurrence: None)
  Receive Date: 20080918
  Receipt Date: 20080908
  Transmission Date: 20090109
  Serious: Yes (Disabling)
  Sender: FDA-Public Use
  Company Number: 2008-183378-NL

PATIENT
  Age: 73 Year
  Sex: Male

DRUGS (6)
  1. ROCURONIUM BROMIDE [Suspect]
     Indication: ANAESTHESIA PROCEDURE
     Dosage: 40 MG, ONCE; INTRAVENOUS
     Route: 042
  2. THIAMYLAL SODIUM [Concomitant]
  3. FENTANYL [Concomitant]
  4. PHENYLEPHRINE HYDROCHLORIDE [Concomitant]
  5. DROPERIDOL [Concomitant]
  6. REMIFENTANIL HYDROCHLORIDE [Concomitant]

REACTIONS (1)
  - RHABDOMYOLYSIS [None]
